FAERS Safety Report 20233903 (Version 1)
Quarter: 2021Q4

REPORT INFORMATION
  Report Type: Spontaneous
  Country: CA (occurrence: CA)
  Receive Date: 20211227
  Receipt Date: 20211227
  Transmission Date: 20220303
  Serious: Yes (Hospitalization, Other)
  Sender: FDA-Public Use
  Company Number: CA-SA-SAC20211224000264

PATIENT
  Age: 60 Year
  Sex: Male
  Weight: 175 kg

DRUGS (17)
  1. CLOPIDOGREL BISULFATE [Suspect]
     Active Substance: CLOPIDOGREL BISULFATE
     Indication: Percutaneous coronary intervention
     Dosage: 75 MG, QD
     Route: 048
  2. CLOPIDOGREL BISULFATE [Suspect]
     Active Substance: CLOPIDOGREL BISULFATE
     Indication: Coronary artery disease
  3. LANTUS [Suspect]
     Active Substance: INSULIN GLARGINE
     Dosage: 52 UNK, BID
     Route: 058
  4. NOVORAPID [Suspect]
     Active Substance: INSULIN ASPART
     Route: 058
  5. ELIQUIS [Suspect]
     Active Substance: APIXABAN
     Indication: Cerebrovascular accident prophylaxis
     Dosage: 5 MG, BID
     Route: 048
  6. ELIQUIS [Suspect]
     Active Substance: APIXABAN
     Indication: Atrial fibrillation
  7. ASPIRIN [Concomitant]
     Active Substance: ASPIRIN
  8. ATORVASTATIN [Concomitant]
     Active Substance: ATORVASTATIN
  9. CANDESARTAN [Concomitant]
     Active Substance: CANDESARTAN
  10. LASIX [Concomitant]
     Active Substance: FUROSEMIDE
  11. NITROGLYCERIN [Concomitant]
     Active Substance: NITROGLYCERIN
  12. PANTOPRAZOLE [Concomitant]
     Active Substance: PANTOPRAZOLE
  13. PREDNISONE [Concomitant]
     Active Substance: PREDNISONE
  14. RANITIDINE [Concomitant]
     Active Substance: RANITIDINE
  15. SOTALOL [Concomitant]
     Active Substance: SOTALOL
  16. TRAVOPROST [Concomitant]
     Active Substance: TRAVOPROST
  17. VITAMIN D2 + CALCIUM [CALCIUM GLUCONATE;CALCIUM PHOSPHATE;ERGOCALCIFER [Concomitant]

REACTIONS (4)
  - Coronary artery disease [Recovered/Resolved]
  - Cardiac failure acute [Recovered/Resolved]
  - Prohormone brain natriuretic peptide increased [Recovered/Resolved]
  - Troponin increased [Recovered/Resolved]
